FAERS Safety Report 4314219-1 (Version None)
Quarter: 2004Q1

REPORT INFORMATION
  Report Type: 
  Country: None (occurrence: None)
  Receive Date: 20040304
  Receipt Date: 20030916
  Transmission Date: 20041129
  Serious: No
  Sender: FDA-Public Use
  Company Number: 202477

PATIENT
  Age: 15 Year
  Sex: Male

DRUGS (5)
  1. NUTROPIN AQ [Suspect]
     Indication: BODY HEIGHT BELOW NORMAL
     Dosage: 3 MG, QD, SUBCUTANEOUS; 3.6 MG, QD, SUBCUTANEOUS; 3 MG, QD, SUBCUTANEOUS
     Route: 058
     Dates: start: 20030301, end: 20030508
  2. NUTROPIN AQ [Suspect]
     Indication: BODY HEIGHT BELOW NORMAL
     Dosage: 3 MG, QD, SUBCUTANEOUS; 3.6 MG, QD, SUBCUTANEOUS; 3 MG, QD, SUBCUTANEOUS
     Route: 058
     Dates: start: 20030508, end: 20030514
  3. NUTROPIN AQ [Suspect]
     Indication: BODY HEIGHT BELOW NORMAL
     Dosage: 3 MG, QD, SUBCUTANEOUS; 3.6 MG, QD, SUBCUTANEOUS; 3 MG, QD, SUBCUTANEOUS
     Route: 058
     Dates: start: 20030514
  4. CELEXA [Concomitant]
  5. ANAFRANIL [Concomitant]

REACTIONS (1)
  - BENIGN INTRACRANIAL HYPERTENSION [None]
